FAERS Safety Report 14421158 (Version 2)
Quarter: 2018Q2

REPORT INFORMATION
  Report Type: Spontaneous
  Country: US (occurrence: US)
  Receive Date: 20180122
  Receipt Date: 20180418
  Transmission Date: 20180711
  Serious: No
  Sender: FDA-Public Use
  Company Number: US-NEUROCRINE BIOSCIENCES INC.-2017NBI01944

PATIENT
  Age: 80 Year
  Sex: Female

DRUGS (2)
  1. INGREZZA [Suspect]
     Active Substance: VALBENAZINE
     Indication: TREMOR
     Route: 048
     Dates: start: 20171223
  2. INGREZZA [Suspect]
     Active Substance: VALBENAZINE
     Indication: TARDIVE DYSKINESIA
     Route: 048
     Dates: start: 20171216, end: 20171222

REACTIONS (6)
  - Rhinorrhoea [Unknown]
  - Drooling [Unknown]
  - Tremor [Unknown]
  - Psychotic disorder [Unknown]
  - Paranoia [Unknown]
  - Speech disorder [Unknown]

NARRATIVE: CASE EVENT DATE: 201712
